FAERS Safety Report 4837092-1 (Version None)
Quarter: 2005Q4

REPORT INFORMATION
  Report Type: 
  Country: None (occurrence: None)
  Receive Date: 20051121
  Receipt Date: 20051121
  Transmission Date: 20060501
  Serious: No
  Sender: FDA-Public Use
  Company Number: None

PATIENT
  Sex: Female

DRUGS (1)
  1. POLYGAM [Suspect]
     Indication: IMMUNOGLOBULINS DECREASED
     Dosage: 10-40  GM ONE TIME IV DRIP
     Route: 042
     Dates: start: 20051112, end: 20051117

REACTIONS (6)
  - CHILLS [None]
  - FLUSHING [None]
  - MUSCLE SPASMS [None]
  - NAUSEA [None]
  - TRANSFUSION REACTION [None]
  - TREMOR [None]
